FAERS Safety Report 10256761 (Version 4)
Quarter: 2014Q3

REPORT INFORMATION
  Report Type: Spontaneous
  Country: US (occurrence: US)
  Receive Date: 20140624
  Receipt Date: 20140801
  Transmission Date: 20150326
  Serious: Yes (Hospitalization)
  Sender: FDA-Public Use
  Company Number: US-ACTELION-A-NJ2014-099979

PATIENT
  Age: 55 Year
  Sex: Female

DRUGS (3)
  1. REVATIO [Concomitant]
     Active Substance: SILDENAFIL CITRATE
  2. VELETRI [Suspect]
     Active Substance: EPOPROSTENOL
     Indication: ATRIAL SEPTAL DEFECT
     Dosage: 60 NG/KG, PER MIN
     Route: 042
     Dates: start: 20110920
  3. OPSUMIT [Suspect]
     Active Substance: MACITENTAN
     Indication: ATRIAL SEPTAL DEFECT
     Dosage: 10 MG, QD
     Route: 048
     Dates: start: 20140203

REACTIONS (4)
  - Myocardial infarction [Unknown]
  - Chest pain [Unknown]
  - Dyspnoea [Unknown]
  - Injection site extravasation [Unknown]
